FAERS Safety Report 19289924 (Version 1)
Quarter: 2021Q2

REPORT INFORMATION
  Report Type: Spontaneous
  Country: US (occurrence: US)
  Receive Date: 20210521
  Receipt Date: 20210521
  Transmission Date: 20210717
  Serious: No
  Sender: FDA-Public Use
  Company Number: US-RADIUS HEALTH INC.-2020US003298

PATIENT
  Age: 59 Year
  Sex: Female
  Weight: 99.32 kg

DRUGS (2)
  1. TYMLOS [Suspect]
     Active Substance: ABALOPARATIDE
     Indication: OSTEOPOROSIS
     Dosage: 80MCG QD
     Route: 058
     Dates: start: 202009
  2. TYMLOS [Suspect]
     Active Substance: ABALOPARATIDE
     Indication: SPINAL COMPRESSION FRACTURE

REACTIONS (4)
  - Weight increased [Not Recovered/Not Resolved]
  - Product administered at inappropriate site [Recovered/Resolved]
  - Bone pain [Recovered/Resolved]
  - Headache [Not Recovered/Not Resolved]

NARRATIVE: CASE EVENT DATE: 20200917
